FAERS Safety Report 8877530 (Version 1)
Quarter: 2012Q4

REPORT INFORMATION
  Report Type: 
  Country: US (occurrence: US)
  Receive Date: 20121024
  Receipt Date: 20121024
  Transmission Date: 20130627
  Serious: Yes (Other)
  Sender: FDA-Public Use
  Company Number: US-PFIZER INC-2012262456

PATIENT
  Age: 78 Year
  Sex: Female
  Weight: 73.02 kg

DRUGS (4)
  1. CELEBREX [Suspect]
     Indication: ARTHRALGIA
     Dosage: UNK
  2. HYDROCHLOROTHIAZIDE [Concomitant]
     Indication: FLUID RETENTION
     Dosage: 12.5 mg, daily
  3. AMLODIPINE/BENAZEPRIL [Concomitant]
     Indication: HYPERTENSION
     Dosage: 10/20 mg, daily
  4. IBUPROFEN [Concomitant]
     Indication: ARTHRALGIA
     Dosage: 200 mg, as needed

REACTIONS (4)
  - Helicobacter infection [Recovered/Resolved]
  - Gastric ulcer [Recovered/Resolved]
  - Cough [Recovered/Resolved]
  - Trigger finger [Unknown]
